FAERS Safety Report 17172632 (Version 1)
Quarter: 2019Q4

REPORT INFORMATION
  Report Type: Spontaneous
  Country: US (occurrence: US)
  Receive Date: 20191219
  Receipt Date: 20191219
  Transmission Date: 20200122
  Serious: No
  Sender: FDA-Public Use
  Company Number: US-SA-2019SA347988

PATIENT
  Sex: Female

DRUGS (1)
  1. LANTUS [Suspect]
     Active Substance: INSULIN GLARGINE
     Indication: TYPE 1 DIABETES MELLITUS
     Dosage: 22-24 UNITS
     Route: 065

REACTIONS (4)
  - Malaise [Unknown]
  - Feeling abnormal [Unknown]
  - Product quality issue [Unknown]
  - Blood glucose increased [Unknown]
